FAERS Safety Report 5751602-1 (Version None)
Quarter: 2008Q2

REPORT INFORMATION
  Report Type: 
  Country: None (occurrence: None)
  Receive Date: 20080528
  Receipt Date: 20080519
  Transmission Date: 20081010
  Serious: Yes (Other)
  Sender: FDA-Public Use
  Company Number: PHHY2008BR02416

PATIENT
  Sex: Female
  Weight: 11.3 kg

DRUGS (4)
  1. TRILEPTAL [Suspect]
     Indication: CONVULSION
     Dosage: 10 ML/DAY
     Route: 048
     Dates: start: 20040101
  2. ZADITEN [Suspect]
     Indication: ADENOIDAL DISORDER
     Dosage: 1.5 ML/DAY
     Route: 048
     Dates: start: 20080222
  3. TOPAMAX [Concomitant]
     Indication: CONVULSION
     Dosage: 150 MG/DAY
     Route: 048
     Dates: start: 20040101
  4. NITRAZEPAM [Concomitant]
     Indication: CONVULSION
     Dosage: 1/2 TAB/DAY
     Route: 048
     Dates: start: 20040101

REACTIONS (3)
  - ADENOIDAL DISORDER [None]
  - AGITATION [None]
  - CONVULSION [None]
